FAERS Safety Report 10884430 (Version 3)
Quarter: 2015Q2

REPORT INFORMATION
  Report Type: Spontaneous
  Country: US (occurrence: US)
  Receive Date: 20150304
  Receipt Date: 20150525
  Transmission Date: 20150821
  Serious: No
  Sender: FDA-Public Use
  Company Number: US-JNJFOC-20150216752

PATIENT
  Sex: Male
  Weight: 108.86 kg

DRUGS (5)
  1. FENTANYL TRANSDERMAL SYSTEM [Suspect]
     Active Substance: FENTANYL
     Indication: PAIN
     Route: 062
  2. OXCARBAZEPINE. [Concomitant]
     Active Substance: OXCARBAZEPINE
     Indication: SEIZURE
     Route: 065
  3. DILTIAZEM HYDROCHLORIDE EXTENDED RELEASE [Concomitant]
     Active Substance: DILTIAZEM HYDROCHLORIDE
     Indication: BLOOD PRESSURE
     Route: 065
  4. MORPHINE IMMEDIATE RELEASE [Concomitant]
     Indication: PAIN
     Route: 065
     Dates: start: 2005, end: 2014
  5. MORPHINE [Concomitant]
     Active Substance: MORPHINE
     Indication: PAIN
     Route: 065
     Dates: start: 2005, end: 2014

REACTIONS (4)
  - Product quality issue [Unknown]
  - Pruritus [Recovered/Resolved]
  - Wrong technique in drug usage process [Unknown]
  - Dermatitis contact [Unknown]
